FAERS Safety Report 5320736-8 (Version None)
Quarter: 2007Q2

REPORT INFORMATION
  Report Type: 
  Country: None (occurrence: None)
  Receive Date: 20070509
  Receipt Date: 20070503
  Transmission Date: 20071010
  Serious: Yes (Congenital Anomaly)
  Sender: FDA-Public Use
  Company Number: DE-SHR-DE-2007-014882

PATIENT

DRUGS (1)
  1. MIRENA [Suspect]

REACTIONS (2)
  - CONGENITAL CLEFT HAND [None]
  - DRUG EXPOSURE DURING PREGNANCY [None]
